FAERS Safety Report 4312074-7 (Version None)
Quarter: 2004Q1

REPORT INFORMATION
  Report Type: 
  Country: None (occurrence: None)
  Receive Date: 20040303
  Receipt Date: 20040219
  Transmission Date: 20041129
  Serious: Yes (Death, Other)
  Sender: FDA-Public Use
  Company Number: RB-528-2004

PATIENT
  Age: 30 Year
  Sex: Male

DRUGS (1)
  1. BUPRENORPHINE HYDROCHLORIDE [Suspect]
     Dosage: IV
     Route: 042

REACTIONS (4)
  - ABSCESS [None]
  - ENDOCARDITIS [None]
  - INTENTIONAL MISUSE [None]
  - SEPSIS [None]
